FAERS Safety Report 8531755-2 (Version None)
Quarter: 2012Q3

REPORT INFORMATION
  Report Type: 
  Country: None (occurrence: None)
  Receive Date: 20120723
  Receipt Date: 20120705
  Transmission Date: 20120928
  Serious: No
  Sender: FDA-Public Use
  Company Number: US-ASTRAZENECA-2012SE46276

PATIENT
  Age: 63 Year
  Sex: Female

DRUGS (2)
  1. GEMFIBROZIL [Suspect]
  2. CRESTOR [Suspect]
     Route: 048

REACTIONS (3)
  - INSOMNIA [None]
  - MALAISE [None]
  - FATIGUE [None]
